FAERS Safety Report 9710066 (Version 2)
Quarter: 2013Q4

REPORT INFORMATION
  Report Type: Report from Study
  Country: MX (occurrence: MX)
  Receive Date: 20131126
  Receipt Date: 20131126
  Transmission Date: 20140711
  Serious: Yes (Death)
  Sender: FDA-Public Use
  Company Number: MX-ROCHE-1256317

PATIENT
  Age: 69 Year
  Sex: Female
  Weight: 62 kg

DRUGS (3)
  1. XELODA [Suspect]
     Indication: BREAST CANCER METASTATIC
     Dosage: DOSAGE:14 DAYS OF TREATMENT AND 1 WEEK REST.
     Route: 048
     Dates: start: 201210, end: 201310
  2. ZOMETA [Concomitant]
     Indication: BREAST CANCER METASTATIC
     Route: 042
     Dates: start: 201110, end: 201310
  3. ANASTROZOLE [Concomitant]
     Indication: BREAST CANCER METASTATIC
     Route: 048
     Dates: start: 201110, end: 201310

REACTIONS (8)
  - Disease progression [Fatal]
  - Dry mouth [Unknown]
  - Diarrhoea [Not Recovered/Not Resolved]
  - Constipation [Not Recovered/Not Resolved]
  - Erythema [Not Recovered/Not Resolved]
  - Stomatitis [Recovered/Resolved]
  - Renal function test abnormal [Recovering/Resolving]
  - Decreased appetite [Not Recovered/Not Resolved]
